FAERS Safety Report 5871707-4 (Version None)
Quarter: 2008Q3

REPORT INFORMATION
  Report Type: 
  Country: None (occurrence: None)
  Receive Date: 20080904
  Receipt Date: 20080904
  Transmission Date: 20090109
  Serious: Yes (Hospitalization)
  Sender: FDA-Public Use
  Company Number: None

PATIENT
  Age: 83 Year
  Sex: Male
  Weight: 65 kg

DRUGS (1)
  1. CETUXIMAB; BRISTOL-MYERS SQUIBB COMPANY [Suspect]
     Indication: BLADDER CANCER
     Dosage: 400 MG/M2 1ST INFUSION IV
     Route: 042
     Dates: start: 20080826

REACTIONS (3)
  - DISEASE PROGRESSION [None]
  - DYSPNOEA [None]
  - OXYGEN SATURATION DECREASED [None]
